FAERS Safety Report 5981843-X (Version None)
Quarter: 2008Q4

REPORT INFORMATION
  Report Type: 
  Country: None (occurrence: None)
  Receive Date: 20081202
  Receipt Date: 20081118
  Transmission Date: 20090506
  Serious: Yes (Hospitalization)
  Sender: FDA-Public Use
  Company Number: KV200800328

PATIENT
  Age: 76 Year
  Sex: Male
  Weight: 127.9 kg

DRUGS (12)
  1. MORPHINE SULFATE   (MORPHINE SULFATE) IMMEDIATE RELEASE [Suspect]
     Indication: PAIN
     Dosage: 15 MG, ONE TABLET Q6, PRN, ORAL
     Route: 048
     Dates: start: 20080805, end: 20080801
  2. TRICOR         /00499301/ (FENOFIBRATE) [Concomitant]
  3. SPIRONOLACTONE [Concomitant]
  4. ROPINIROLE HYDROCHLORIDE [Concomitant]
  5. ALLOPURINOL [Concomitant]
  6. LOVASTATIN [Concomitant]
  7. TYLENOL /00020001/ (PARACETAMOL) [Concomitant]
  8. METOPROLOL TARTRATE [Concomitant]
  9. FUROSEMIDE [Concomitant]
  10. DIGOXIN [Concomitant]
  11. GABAPENTIN [Concomitant]
  12. POTASSIUM CHLORIDE [Concomitant]

REACTIONS (3)
  - MENTAL DISORDER [None]
  - NONSPECIFIC REACTION [None]
  - PRODUCT QUALITY ISSUE [None]
